FAERS Safety Report 7346270-1 (Version None)
Quarter: 2011Q1

REPORT INFORMATION
  Report Type: 
  Country: None (occurrence: None)
  Receive Date: 20110311
  Receipt Date: 20110308
  Transmission Date: 20110831
  Serious: No
  Sender: FDA-Public Use
  Company Number: US-PFIZER INC-2011051170

PATIENT
  Age: 15 Year
  Sex: Female
  Weight: 39.456 kg

DRUGS (1)
  1. IBUPROFEN (ADVIL) [Suspect]
     Indication: OROPHARYNGEAL PAIN
     Dosage: 2 LIQUI GEL CAPSULES, UNKNOWN FREQUENCY
     Route: 048
     Dates: start: 20110307

REACTIONS (3)
  - DEPRESSED MOOD [None]
  - VOMITING [None]
  - HYPERSENSITIVITY [None]
